FAERS Safety Report 15110598 (Version 3)
Quarter: 2018Q3

REPORT INFORMATION
  Report Type: Report from Study
  Country: BE (occurrence: BE)
  Receive Date: 20180705
  Receipt Date: 20180720
  Transmission Date: 20181010
  Serious: Yes (Other)
  Sender: FDA-Public Use
  Company Number: PHHY2018BE037037

PATIENT
  Sex: Male

DRUGS (2)
  1. TRAMETINIB [Suspect]
     Active Substance: TRAMETINIB
     Indication: ERDHEIM-CHESTER DISEASE
     Dosage: 2 MG, UNK
     Route: 048
     Dates: start: 20180329, end: 20180606
  2. TRAMETINIB [Suspect]
     Active Substance: TRAMETINIB
     Dosage: 0.5 MG, QD (3 X 0.5 MG DAILY)
     Route: 048

REACTIONS (3)
  - Cardiotoxicity [Recovering/Resolving]
  - Left ventricular dysfunction [Recovered/Resolved]
  - Myositis [Recovering/Resolving]

NARRATIVE: CASE EVENT DATE: 2018
